FAERS Safety Report 9783084 (Version 1)
Quarter: 2013Q4

REPORT INFORMATION
  Report Type: Report from Study
  Country: GB (occurrence: GB)
  Receive Date: 20131226
  Receipt Date: 20131226
  Transmission Date: 20140711
  Serious: Yes (Death, Hospitalization)
  Sender: FDA-Public Use
  Company Number: GB-SA-2013SA134189

PATIENT
  Age: 69 Year
  Sex: Female
  Weight: 59.3 kg

DRUGS (8)
  1. DOCETAXEL [Suspect]
     Indication: NON-SMALL CELL LUNG CANCER
     Route: 042
     Dates: start: 20130723, end: 20130723
  2. INVESTIGATIONAL DRUG [Suspect]
     Indication: NON-SMALL CELL LUNG CANCER
     Route: 042
     Dates: start: 20130723, end: 20130726
  3. FOLIC ACID [Concomitant]
     Indication: SINGLE PHOTON EMISSION COMPUTERISED TOMOGRAM
     Route: 065
     Dates: start: 20130712, end: 20130712
  4. INVESTIGATIONAL DRUG [Concomitant]
     Indication: SINGLE PHOTON EMISSION COMPUTERISED TOMOGRAM
     Route: 042
     Dates: start: 20130712, end: 20130712
  5. FERROUS SULFATE [Concomitant]
  6. LANSOPRAZOLE [Concomitant]
  7. CO-CODAMOL [Concomitant]
  8. SALBUTAMOL [Concomitant]

REACTIONS (4)
  - Cardiac arrest [Fatal]
  - Multi-organ failure [Fatal]
  - Neutropenic sepsis [Fatal]
  - Hypotension [Recovered/Resolved]
